FAERS Safety Report 13262208 (Version 3)
Quarter: 2018Q1

REPORT INFORMATION
  Report Type: Spontaneous
  Country: JP (occurrence: JP)
  Receive Date: 20170222
  Receipt Date: 20180323
  Transmission Date: 20180508
  Serious: Yes (Other)
  Sender: FDA-Public Use
  Company Number: JP-009507513-1502JPN008551

PATIENT
  Age: 6 Decade
  Sex: Male

DRUGS (5)
  1. RENIVACE TABLETS 5 [Suspect]
     Active Substance: ENALAPRIL
     Indication: HYPERTENSION
     Dosage: AFTER BREAKFAST, QD
     Route: 048
  2. SUGLAT [Suspect]
     Active Substance: IPRAGLIFLOZIN L-PROLINE
     Dosage: AFTER BREAKFAST, QD
     Route: 048
  3. JANUVIA [Suspect]
     Active Substance: SITAGLIPTIN PHOSPHATE
     Indication: DIABETES MELLITUS
     Dosage: 50 MG, QD
     Route: 048
  4. GLACTIV [Concomitant]
     Active Substance: SITAGLIPTIN
     Dosage: 50 MG, UNK
     Route: 048
  5. JANUVIA [Suspect]
     Active Substance: SITAGLIPTIN PHOSPHATE
     Indication: DIABETES MELLITUS
     Dosage: 100 MG, QD
     Route: 048

REACTIONS (6)
  - Blood pressure decreased [Unknown]
  - Hunger [Recovered/Resolved]
  - Myocardial infarction [Unknown]
  - Feeling abnormal [Unknown]
  - Blood glucose increased [Unknown]
  - Drug ineffective [Unknown]

NARRATIVE: CASE EVENT DATE: 201502
